FAERS Safety Report 20061603 (Version 2)
Quarter: 2021Q4

REPORT INFORMATION
  Report Type: Spontaneous
  Country: GR (occurrence: None)
  Receive Date: 20211112
  Receipt Date: 20211115
  Transmission Date: 20220304
  Serious: Yes (Other)
  Sender: FDA-Public Use
  Company Number: 2021A798457

PATIENT
  Sex: Male
  Weight: 75 kg

DRUGS (7)
  1. NEXIUM [Suspect]
     Active Substance: ESOMEPRAZOLE MAGNESIUM
     Dosage: EVERY MORNING
     Route: 065
  2. COMIRNATY [Suspect]
     Active Substance: TOZINAMERAN
     Route: 065
  3. CARVEDILOL [Concomitant]
     Active Substance: CARVEDILOL
     Dosage: 1/4 OF THE TABLET TWICE DAILY
  4. SILODOSIN [Concomitant]
     Active Substance: SILODOSIN
     Dosage: ONCE DAILY
  5. ASPIRIN [Concomitant]
     Active Substance: ASPIRIN
     Dosage: EVERY NOON
  6. PITAVASTATIN [Concomitant]
     Active Substance: PITAVASTATIN
     Dosage: EVERY NOON
  7. PRESTALIA [Concomitant]
     Active Substance: AMLODIPINE BESYLATE\PERINDOPRIL ARGININE
     Dosage: EVERY MORNING
     Route: 065

REACTIONS (1)
  - Syncope [Unknown]

NARRATIVE: CASE EVENT DATE: 20210707
